FAERS Safety Report 6685027-1 (Version None)
Quarter: 2010Q2

REPORT INFORMATION
  Report Type: 
  Country: None (occurrence: None)
  Receive Date: 20100416
  Receipt Date: 20100405
  Transmission Date: 20101027
  Serious: Yes (Life-Threatening, Hospitalization, Other)
  Sender: FDA-Public Use
  Company Number: DE-WYE-H14328010

PATIENT
  Sex: Female
  Weight: 82 kg

DRUGS (9)
  1. PANTOPRAZOLE [Suspect]
  2. METOPROLOL TARTRATE [Concomitant]
     Dosage: 142.5 MG, FREQUENCY UNKNOWN
  3. ACETYLSALICYLIC ACID [Concomitant]
     Dosage: 100 MG, FREQUENCY UNKNOWN
     Dates: start: 20041101
  4. SYMBICORT [Concomitant]
     Dosage: UNKNOWN
  5. TORSEMIDE [Concomitant]
     Dosage: 10 MG, FREQUENCY UNKNOWN
  6. AMANTADINE HCL [Concomitant]
     Dosage: 100 MEQ, FREQUENCY UNKNOWN
     Dates: start: 20090101
  7. FLUVASTATIN [Concomitant]
     Dosage: 80 MG, FREQUENCY UNKNOWN
     Dates: start: 20090101
  8. RASILEZ [Concomitant]
     Dates: start: 20081121, end: 20090831
  9. RAMIPRIL [Concomitant]
     Dosage: 10 MG, FREQUENCY UNKNOWN
     Dates: start: 20080710

REACTIONS (5)
  - CONDITION AGGRAVATED [None]
  - CORONARY ARTERY DISEASE [None]
  - CORONARY ARTERY OCCLUSION [None]
  - CORONARY ARTERY STENOSIS [None]
  - DIABETES MELLITUS [None]
